FAERS Safety Report 17669625 (Version 1)
Quarter: 2020Q2

REPORT INFORMATION
  Report Type: Spontaneous
  Country: DE (occurrence: DE)
  Receive Date: 20200415
  Receipt Date: 20200415
  Transmission Date: 20200713
  Serious: Yes (Death, Disabling)
  Sender: FDA-Public Use
  Company Number: DE-MYLANLABS-2020M1037074

PATIENT

DRUGS (3)
  1. OLANZAPINE. [Suspect]
     Active Substance: OLANZAPINE
     Indication: DRUG THERAPY
     Dosage: 12.5 MILLIGRAM, QD
     Route: 065
  2. HALOPERIDOL. [Suspect]
     Active Substance: HALOPERIDOL
     Indication: DRUG THERAPY
     Dosage: 2 MILLIGRAM, QD
     Route: 065
  3. PROTHIPENDYL [Suspect]
     Active Substance: PROTHIPENDYL
     Indication: DRUG THERAPY
     Dosage: 120 MILLIGRAM, QD
     Route: 065

REACTIONS (3)
  - Parkinsonism [Fatal]
  - Immobile [Unknown]
  - Pneumonia [Fatal]
